FAERS Safety Report 21091121 (Version 3)
Quarter: 2022Q3

REPORT INFORMATION
  Report Type: Spontaneous
  Country: US (occurrence: US)
  Receive Date: 20220716
  Receipt Date: 20220729
  Transmission Date: 20221027
  Serious: Yes (Hospitalization, Other)
  Sender: FDA-Public Use
  Company Number: US-UNITED THERAPEUTICS-UNT-2022-014322

PATIENT
  Age: 49 Year
  Sex: Female
  Weight: 77.551 kg

DRUGS (4)
  1. REMODULIN [Suspect]
     Active Substance: TREPROSTINIL
     Indication: Pulmonary arterial hypertension
     Dosage: UNK, CONTINUING
     Route: 058
     Dates: start: 20211007
  2. REMODULIN [Suspect]
     Active Substance: TREPROSTINIL
     Dosage: 0.026 ?G/KG, CONTINUING
     Route: 058
     Dates: end: 2022
  3. TADALAFIL [Concomitant]
     Active Substance: TADALAFIL
     Indication: Pulmonary arterial hypertension
     Dosage: UNK
     Route: 065
  4. AMBRISENTAN [Concomitant]
     Active Substance: AMBRISENTAN
     Indication: Product used for unknown indication
     Dosage: UNK
     Route: 065

REACTIONS (12)
  - Cellulitis [Unknown]
  - Abdominal distension [Unknown]
  - Cardiac failure congestive [Unknown]
  - Infusion site induration [Unknown]
  - Infusion site pain [Unknown]
  - Infusion site haemorrhage [Recovering/Resolving]
  - Fluid retention [Unknown]
  - Rubber sensitivity [Unknown]
  - Infusion site erythema [Unknown]
  - Infusion site nodule [Unknown]
  - Infusion site discharge [Unknown]
  - Purulent discharge [Unknown]

NARRATIVE: CASE EVENT DATE: 20220627
